FAERS Safety Report 5030104-4 (Version None)
Quarter: 2006Q2

REPORT INFORMATION
  Report Type: 
  Country: None (occurrence: None)
  Receive Date: 20060614
  Receipt Date: 20060605
  Transmission Date: 20061013
  Serious: Yes (Hospitalization, Other)
  Sender: FDA-Public Use
  Company Number: 2005-12-0618

PATIENT
  Age: 69 Year
  Sex: Male

DRUGS (15)
  1. DIPROLENE [Suspect]
     Indication: RASH
     Dosage: TOP-DERM
     Route: 061
     Dates: start: 20051019, end: 20051028
  2. PREDONINE TABLETS [Suspect]
     Indication: IDIOPATHIC PULMONARY FIBROSIS
     Dosage: 7.5MG ORAL; SEE IMAGE
     Route: 048
  3. PREDONINE TABLETS [Suspect]
     Indication: IDIOPATHIC PULMONARY FIBROSIS
     Dosage: 7.5MG ORAL; SEE IMAGE
     Route: 048
  4. PREDONINE TABLETS [Suspect]
     Indication: IDIOPATHIC PULMONARY FIBROSIS
     Dosage: 7.5MG ORAL; SEE IMAGE
     Route: 048
  5. PREDONINE TABLETS [Suspect]
     Indication: IDIOPATHIC PULMONARY FIBROSIS
     Dosage: 7.5MG ORAL; SEE IMAGE
     Route: 048
     Dates: start: 20010101
  6. PREDONINE TABLETS [Suspect]
     Indication: IDIOPATHIC PULMONARY FIBROSIS
     Dosage: 7.5MG ORAL; SEE IMAGE
     Route: 048
     Dates: start: 20041023
  7. PREDONINE TABLETS [Suspect]
     Indication: IDIOPATHIC PULMONARY FIBROSIS
     Dosage: 7.5MG ORAL; SEE IMAGE
     Route: 048
     Dates: start: 20041119
  8. PREDONINE TABLETS [Suspect]
     Indication: IDIOPATHIC PULMONARY FIBROSIS
     Dosage: 7.5MG ORAL; SEE IMAGE
     Route: 048
     Dates: start: 20050513
  9. S-7701 (BLINDED PIRFENIDONE) TABLETS [Suspect]
     Indication: IDIOPATHIC PULMONARY FIBROSIS
     Dosage: 3 TABS QD ORAL
     Route: 048
     Dates: start: 20050708, end: 20050722
  10. S-7701 (BLINDED PIRFENIDONE) TABLETS [Suspect]
     Indication: IDIOPATHIC PULMONARY FIBROSIS
     Dosage: 3 TABS QD ORAL
     Route: 048
     Dates: start: 20050722, end: 20050805
  11. S-7701 (BLINDED PIRFENIDONE) TABLETS [Suspect]
     Indication: IDIOPATHIC PULMONARY FIBROSIS
     Dosage: 3 TABS QD ORAL
     Route: 048
     Dates: start: 20050805, end: 20060217
  12. LENDORMIN [Concomitant]
  13. FUNGIZONE [Concomitant]
  14. ZANTAC [Concomitant]
  15. FOSAMAX [Concomitant]

REACTIONS (5)
  - LUNG NEOPLASM MALIGNANT [None]
  - OSTEONECROSIS [None]
  - PNEUMOCYSTIS JIROVECI PNEUMONIA [None]
  - PRURITUS [None]
  - RASH [None]
